FAERS Safety Report 15953464 (Version 4)
Quarter: 2019Q2

REPORT INFORMATION
  Report Type: Spontaneous
  Country: US (occurrence: US)
  Receive Date: 20190212
  Receipt Date: 20190525
  Transmission Date: 20190711
  Serious: Yes (Death, Hospitalization, Other)
  Sender: FDA-Public Use
  Company Number: US-BRISTOL-MYERS SQUIBB COMPANY-BMS-2019-012103

PATIENT
  Age: 60 Year
  Sex: Male

DRUGS (2)
  1. OPDIVO [Suspect]
     Active Substance: NIVOLUMAB
     Indication: PROSTATE CANCER
     Dosage: 240 MG, Q2WK
     Route: 065
     Dates: start: 20180202
  2. OPDIVO [Suspect]
     Active Substance: NIVOLUMAB
     Indication: PRODUCT USED FOR UNKNOWN INDICATION
     Dosage: 3 MILLIGRAM/KILOGRAM
     Route: 065
     Dates: start: 20180219, end: 20180406

REACTIONS (12)
  - Cardio-respiratory arrest [Fatal]
  - Urinary retention [Unknown]
  - Urinary tract infection [Unknown]
  - Staphylococcus test positive [Unknown]
  - Anaemia [Unknown]
  - Fluid retention [Fatal]
  - Oral candidiasis [Unknown]
  - Respiratory failure [Fatal]
  - Tachycardia [Unknown]
  - Malignant neoplasm progression [Unknown]
  - Product use in unapproved indication [Unknown]
  - Renal failure [Fatal]

NARRATIVE: CASE EVENT DATE: 20180322
